FAERS Safety Report 6182279-1 (Version None)
Quarter: 2009Q2

REPORT INFORMATION
  Report Type: 
  Country: None (occurrence: None)
  Receive Date: 20090505
  Receipt Date: 20090421
  Transmission Date: 20091009
  Serious: Yes (Other)
  Sender: FDA-Public Use
  Company Number: 230036K08CAN

PATIENT
  Age: 54 Year
  Sex: Female

DRUGS (12)
  1. REBIF [Suspect]
     Indication: RELAPSING-REMITTING MULTIPLE SCLEROSIS
     Dosage: 22 MCG, 3 IN 1 WEEKS
     Dates: start: 19991001
  2. AVALIDE [Concomitant]
  3. CALCIUM (CALCIUM /00751501/) [Concomitant]
  4. NEXIUM [Concomitant]
  5. VITAMIN D [Concomitant]
  6. WELLBUTRIN [Concomitant]
  7. OXYBUTININ (OXYBUTYNIN /00538901/) [Concomitant]
  8. CLONAZEPAM [Concomitant]
  9. CETIRIZINE HCL [Concomitant]
  10. HYDROCHLORIDE (HYDROCHLORIC ACID) [Concomitant]
  11. BISOPROLOL (BISOPROLOL /00802601/) [Concomitant]
  12. INOCORT OINTMENT (BECLOMETASONE DIPROPIONATE) [Concomitant]

REACTIONS (1)
  - PORPHYRIA NON-ACUTE [None]
